FAERS Safety Report 9553986 (Version 2)
Quarter: 2013Q4

REPORT INFORMATION
  Report Type: Spontaneous
  Country: GB (occurrence: GB)
  Receive Date: 20130925
  Receipt Date: 20131213
  Transmission Date: 20140711
  Serious: Yes (Hospitalization, Other)
  Sender: FDA-Public Use
  Company Number: GB-WATSON-2013-16795

PATIENT
  Age: 78 Year
  Sex: Female

DRUGS (6)
  1. SERTRALINE HYDROCHLORIDE (UNKNOWN) [Suspect]
     Indication: DEPRESSION
     Dosage: 150 MG, DAILY; 1 WEEK PRIOR TO REACTION WAS INCREASED TO 150 MG PO OD.
     Route: 048
     Dates: start: 201308, end: 20130827
  2. SERTRALINE HYDROCHLORIDE (UNKNOWN) [Suspect]
     Dosage: 100 MG, DAILY; WAS ON SERTRALINE 100 MG PO OD FOR A LONG TIME.
     Route: 048
  3. BACLOFEN [Concomitant]
     Indication: PRODUCT USED FOR UNKNOWN INDICATION
     Dosage: UNK
     Route: 065
  4. ADCAL D3 [Concomitant]
     Indication: PRODUCT USED FOR UNKNOWN INDICATION
     Dosage: 1 DF, BID
     Route: 048
  5. SIMVASTATIN [Concomitant]
     Indication: PRODUCT USED FOR UNKNOWN INDICATION
     Dosage: 20 MG, QPM
     Route: 065
  6. ZOPICLONE [Concomitant]
     Indication: PRODUCT USED FOR UNKNOWN INDICATION
     Dosage: 7.5 MG, QPM
     Route: 048

REACTIONS (4)
  - Serotonin syndrome [Recovered/Resolved]
  - Fall [Recovered/Resolved]
  - Muscle rigidity [Recovered/Resolved]
  - Muscle contracture [Recovered/Resolved]
